FAERS Safety Report 7043400-6 (Version None)
Quarter: 2010Q3

REPORT INFORMATION
  Report Type: 
  Country: None (occurrence: None)
  Receive Date: 20100929
  Receipt Date: 20100608
  Transmission Date: 20110219
  Serious: Yes (Hospitalization)
  Sender: FDA-Public Use
  Company Number: US-WYE-H15558110

PATIENT
  Age: 77 Year
  Sex: Female

DRUGS (1)
  1. PRISTIQ [Suspect]
     Dates: end: 20100601

REACTIONS (4)
  - BLOOD SODIUM DECREASED [None]
  - DRUG WITHDRAWAL SYNDROME [None]
  - FATIGUE [None]
  - HEADACHE [None]
